FAERS Safety Report 18747131 (Version 1)
Quarter: 2021Q1

REPORT INFORMATION
  Report Type: Spontaneous
  Country: US (occurrence: US)
  Receive Date: 20210115
  Receipt Date: 20210115
  Transmission Date: 20210419
  Serious: Yes (Hospitalization, Other)
  Sender: FDA-Public Use
  Company Number: US-BIO PRODUCTS LABORATORY LTD-2105382

PATIENT
  Age: 72 Year
  Sex: Female

DRUGS (3)
  1. PYRIDOSTIGMINE [Concomitant]
     Active Substance: PYRIDOSTIGMINE
  2. PREDNISONE. [Concomitant]
     Active Substance: PREDNISONE
  3. GENERIC IVIG [Suspect]
     Active Substance: HUMAN IMMUNOGLOBULIN G
     Indication: MYASTHENIA GRAVIS
     Route: 042

REACTIONS (4)
  - Anaemia [Recovering/Resolving]
  - Jaundice [Recovering/Resolving]
  - Renal failure [Recovering/Resolving]
  - Off label use [Recovering/Resolving]
